FAERS Safety Report 22194441 (Version 1)
Quarter: 2023Q2

REPORT INFORMATION
  Report Type: Other
  Country: IE (occurrence: IE)
  Receive Date: 20230411
  Receipt Date: 20230411
  Transmission Date: 20230721
  Serious: Yes (Other)
  Sender: FDA-Public Use
  Company Number: IE-002147023-NVSC2023IE077487

PATIENT
  Age: 55 Year
  Sex: Female

DRUGS (1)
  1. XOLAIR [Suspect]
     Active Substance: OMALIZUMAB
     Indication: Asthma
     Dosage: 450 MG, EVERY 4 WEEKS
     Route: 058
     Dates: start: 20230331

REACTIONS (2)
  - Paraesthesia oral [Recovering/Resolving]
  - Tongue discomfort [Recovering/Resolving]

NARRATIVE: CASE EVENT DATE: 20230331
